FAERS Safety Report 24438699 (Version 1)
Quarter: 2024Q4

REPORT INFORMATION
  Report Type: Spontaneous
  Country: US (occurrence: None)
  Receive Date: 20241013
  Receipt Date: 20241013
  Transmission Date: 20250114
  Serious: Yes (Disabling)
  Sender: Public
  Company Number: None

PATIENT
  Age: 75 Year
  Sex: Female
  Weight: 55.35 kg

DRUGS (1)
  1. PROLIA [Suspect]
     Active Substance: DENOSUMAB
     Indication: Osteoporosis
     Dosage: OTHER FREQUENCY : EVERY 6 MONTHS;?
     Route: 058
     Dates: start: 20210614, end: 20240610

REACTIONS (1)
  - Femur fracture [None]

NARRATIVE: CASE EVENT DATE: 20240611
